FAERS Safety Report 9061476 (Version 3)
Quarter: 2013Q2

REPORT INFORMATION
  Report Type: Spontaneous
  Country: NL (occurrence: NL)
  Receive Date: 20130204
  Receipt Date: 20130401
  Transmission Date: 20140414
  Serious: Yes (Death, Other)
  Sender: FDA-Public Use
  Company Number: NL-ELI_LILLY_AND_COMPANY-NL201301008938

PATIENT
  Age: 86 Year
  Sex: Female
  Weight: 60 kg

DRUGS (14)
  1. FORSTEO [Suspect]
     Indication: OSTEOPOROSIS
     Dosage: 20 UG, UNK
     Route: 058
     Dates: start: 20121206, end: 20130110
  2. CALCIUM CARBONATE W/COLECALCIFEROL [Concomitant]
     Dosage: UNK, UNKNOWN
     Route: 065
  3. FENPROCOUMON [Concomitant]
     Dosage: UNK, UNKNOWN
     Route: 065
  4. FOLIUMZUUR [Concomitant]
     Dosage: UNK, UNKNOWN
     Route: 065
  5. FUROSEMIDE [Concomitant]
     Dosage: UNK, UNKNOWN
     Route: 065
  6. LEFLUNOMIDE [Concomitant]
     Dosage: UNK, UNKNOWN
     Route: 065
  7. METHOTREXAAT [Concomitant]
     Dosage: UNK, UNKNOWN
     Route: 065
  8. NEBIVOLOL [Concomitant]
     Dosage: UNK, UNKNOWN
     Route: 065
  9. PANTOPRAZOL [Concomitant]
     Dosage: UNK, UNKNOWN
     Route: 065
  10. PREDNISOLON [Concomitant]
     Dosage: UNK, UNKNOWN
     Route: 065
  11. TEMAZEPAM [Concomitant]
     Dosage: UNK, UNKNOWN
     Route: 065
  12. TRAMADOL [Concomitant]
     Dosage: UNK, UNKNOWN
     Route: 065
  13. VALSARTAN [Concomitant]
     Dosage: UNK, UNKNOWN
     Route: 065
  14. TIOTROPIUM [Concomitant]
     Dosage: UNK, UNKNOWN
     Route: 065

REACTIONS (4)
  - Death [Fatal]
  - Myocardial infarction [Unknown]
  - Erysipelas [Not Recovered/Not Resolved]
  - Asthenia [Not Recovered/Not Resolved]
